FAERS Safety Report 13387775 (Version 2)
Quarter: 2019Q1

REPORT INFORMATION
  Report Type: Spontaneous
  Country: US (occurrence: US)
  Receive Date: 20170330
  Receipt Date: 20190326
  Transmission Date: 20190417
  Serious: Yes (Hospitalization)
  Sender: FDA-Public Use
  Company Number: US-ACTELION-A-US2017-151496

PATIENT
  Sex: Female

DRUGS (16)
  1. OMEPRAZOLE. [Concomitant]
     Active Substance: OMEPRAZOLE
  2. XANAX [Concomitant]
     Active Substance: ALPRAZOLAM
     Dosage: 0.25 MG
  3. ADEMPAS [Concomitant]
     Active Substance: RIOCIGUAT
  4. FUROSEMIDE. [Concomitant]
     Active Substance: FUROSEMIDE
  5. DIGOXIN. [Concomitant]
     Active Substance: DIGOXIN
  6. WARFARIN [Concomitant]
     Active Substance: WARFARIN
  7. BUPROPION. [Concomitant]
     Active Substance: BUPROPION
  8. METOPROLOL. [Concomitant]
     Active Substance: METOPROLOL
  9. KLOR-CON [Concomitant]
     Active Substance: POTASSIUM CHLORIDE
  10. SPIRONOLACTONE. [Concomitant]
     Active Substance: SPIRONOLACTONE
  11. CEFAZOLIN [Concomitant]
     Active Substance: CEFAZOLIN
  12. ZOLPIDEM [Concomitant]
     Active Substance: ZOLPIDEM\ZOLPIDEM TARTRATE
  13. TRACLEER [Suspect]
     Active Substance: BOSENTAN
     Indication: PULMONARY HYPERTENSION
     Dosage: 125 MG, UNK
     Route: 048
     Dates: start: 20170109
  14. CLOPIDOGREL [Concomitant]
     Active Substance: CLOPIDOGREL BISULFATE
     Dosage: 300 MG, UNK
  15. VENLAFAXINE [Concomitant]
     Active Substance: VENLAFAXINE HYDROCHLORIDE
  16. FLONASE [Concomitant]
     Active Substance: FLUTICASONE PROPIONATE

REACTIONS (2)
  - Influenza [Recovered/Resolved]
  - Therapy change [Unknown]
